FAERS Safety Report 17299755 (Version 1)
Quarter: 2020Q1

REPORT INFORMATION
  Report Type: Spontaneous
  Country: US (occurrence: US)
  Receive Date: 20200121
  Receipt Date: 20200121
  Transmission Date: 20200409
  Serious: No
  Sender: FDA-Public Use
  Company Number: None

PATIENT
  Age: 5 Year
  Sex: Male
  Weight: 17.55 kg

DRUGS (1)
  1. OSELTAMIVIR PHOSPHATE. [Suspect]
     Active Substance: OSELTAMIVIR PHOSPHATE
     Indication: INFLUENZA
     Dosage: ?          OTHER STRENGTH:MG/ML;QUANTITY:7.5 ML;?
     Route: 048
     Dates: start: 20200118, end: 20200120

REACTIONS (1)
  - Rash [None]

NARRATIVE: CASE EVENT DATE: 20200120
